FAERS Safety Report 26134077 (Version 1)
Quarter: 2025Q4

REPORT INFORMATION
  Report Type: Spontaneous
  Country: GB (occurrence: GB)
  Receive Date: 20251209
  Receipt Date: 20251209
  Transmission Date: 20260118
  Serious: Yes (Other)
  Sender: RANBAXY
  Company Number: GB-SUN PHARMACEUTICAL INDUSTRIES INC-2025R1-540302

PATIENT
  Age: 53 Year
  Sex: Male

DRUGS (3)
  1. SOTALOL [Suspect]
     Active Substance: SOTALOL
     Indication: Atrial fibrillation
     Dosage: 80 MILLIGRAM, BID
     Route: 065
  2. RAMIPRIL [Concomitant]
     Active Substance: RAMIPRIL
     Indication: Hypertension
     Dosage: 10 MILLIGRAM, QD
     Route: 065
  3. EDOXABAN [Concomitant]
     Active Substance: EDOXABAN
     Indication: Cerebrovascular accident
     Dosage: 60 MILLIGRAM, QD
     Route: 065

REACTIONS (1)
  - Therapy non-responder [Unknown]
